FAERS Safety Report 5012392-3 (Version None)
Quarter: 2006Q2

REPORT INFORMATION
  Report Type: 
  Country: None (occurrence: None)
  Receive Date: 20060411
  Receipt Date: 20051005
  Transmission Date: 20061013
  Serious: No
  Sender: FDA-Public Use
  Company Number: 05P-163-0313153-00

PATIENT
  Age: 68 Year
  Sex: Male

DRUGS (1)
  1. BIAXIN XL [Suspect]
     Indication: UPPER RESPIRATORY TRACT INFECTION
     Dosage: 500 MG, 2 IN 1 D, ORAL
     Route: 048
     Dates: start: 20050829, end: 20050829

REACTIONS (2)
  - DYSGEUSIA [None]
  - NAUSEA [None]
